FAERS Safety Report 9486844 (Version 1)
Quarter: 2013Q3

REPORT INFORMATION
  Report Type: Spontaneous
  Country: US (occurrence: US)
  Receive Date: 20130829
  Receipt Date: 20130829
  Transmission Date: 20140515
  Serious: Yes (Other)
  Sender: FDA-Public Use
  Company Number: US-BAYER-2013-101852

PATIENT
  Sex: 0

DRUGS (2)
  1. CIPRO [Suspect]
     Dosage: 500 MG, UNK
  2. CIPRO [Suspect]
     Dosage: 500 MG, UNK

REACTIONS (4)
  - Skin lesion [None]
  - Precancerous skin lesion [None]
  - Pruritus [None]
  - Pruritus [Recovered/Resolved]
